FAERS Safety Report 21499403 (Version 1)
Quarter: 2022Q4

REPORT INFORMATION
  Report Type: Spontaneous
  Country: US (occurrence: None)
  Receive Date: 20221024
  Receipt Date: 20221024
  Transmission Date: 20230113
  Serious: Yes (Hospitalization, Other)
  Sender: FDA-Public Use
  Company Number: None

PATIENT
  Age: 14 Year
  Sex: Female

DRUGS (2)
  1. .DELTA.8-TETRAHYDROCANNABINOL\HERBALS [Suspect]
     Active Substance: .DELTA.8-TETRAHYDROCANNABINOL\HERBALS
     Dosage: OTHER FREQUENCY : 1 GUMMY EVERY 2 HR;?
     Route: 048
  2. Delta8THCDeath by GummyBear [Concomitant]

REACTIONS (25)
  - Speech disorder developmental [None]
  - Dizziness [None]
  - Vomiting [None]
  - Tremor [None]
  - Speech disorder [None]
  - Confusional state [None]
  - Mydriasis [None]
  - Gait disturbance [None]
  - Crying [None]
  - Anxiety [None]
  - Anxiety [None]
  - Heart rate increased [None]
  - Respiratory rate increased [None]
  - Hypertension [None]
  - Dyspnoea [None]
  - Throat tightness [None]
  - Hyperacusis [None]
  - Hyperaesthesia [None]
  - Dizziness [None]
  - Communication disorder [None]
  - Speech disorder [None]
  - Lethargy [None]
  - Somnolence [None]
  - Nausea [None]
  - Aggression [None]

NARRATIVE: CASE EVENT DATE: 20221021
